FAERS Safety Report 9734161 (Version 2)
Quarter: 2013Q4

REPORT INFORMATION
  Report Type: Report from Study
  Country: CA (occurrence: CA)
  Receive Date: 20131205
  Receipt Date: 20131205
  Transmission Date: 20140711
  Serious: Yes (Other)
  Sender: FDA-Public Use
  Company Number: CA-ABBVIE-13P-028-1173174-00

PATIENT
  Sex: Male

DRUGS (4)
  1. HUMIRA [Suspect]
     Indication: CROHN^S DISEASE
     Route: 058
     Dates: start: 20091015, end: 201302
  2. HUMIRA [Suspect]
     Route: 058
     Dates: start: 20131003, end: 20131124
  3. NEXIUM [Concomitant]
     Indication: GASTRIC DISORDER
     Dosage: QD
     Route: 048
     Dates: start: 2009
  4. PURINETHOL [Concomitant]
     Indication: CROHN^S DISEASE
     Dosage: QD
     Route: 048
     Dates: start: 2009

REACTIONS (4)
  - Tendon rupture [Recovered/Resolved]
  - Bone pain [Not Recovered/Not Resolved]
  - Arthralgia [Not Recovered/Not Resolved]
  - Arthritis [Not Recovered/Not Resolved]
